FAERS Safety Report 5885583-7 (Version None)
Quarter: 2008Q3

REPORT INFORMATION
  Report Type: 
  Country: None (occurrence: None)
  Receive Date: 20080916
  Receipt Date: 20080902
  Transmission Date: 20090109
  Serious: Yes (Death, Other)
  Sender: FDA-Public Use
  Company Number: US-AMGEN-01110040

PATIENT
  Age: 60 Year
  Sex: Male

DRUGS (11)
  1. ETANERCEPT [Suspect]
     Indication: WEGENER'S GRANULOMATOSIS
     Route: 058
     Dates: start: 20010126, end: 20010917
  2. ETANERCEPT [Suspect]
  3. CYCLOPHOSPHAMIDE [Suspect]
  4. FOSAMAX [Concomitant]
  5. LORAZEPAM [Concomitant]
  6. CYCLOBENZAPRINE HCL [Concomitant]
  7. TRIMETHOPRIM [Concomitant]
  8. SIMVASTATIN [Concomitant]
  9. ATENOLOL [Concomitant]
  10. PREDNISONE TAB [Concomitant]
  11. METHOTREXATE [Concomitant]

REACTIONS (6)
  - GALLBLADDER CANCER [None]
  - METASTASES TO BONE [None]
  - METASTASES TO LIVER [None]
  - METASTASES TO LUNG [None]
  - METASTASIS [None]
  - REFUSAL OF TREATMENT BY PATIENT [None]
